FAERS Safety Report 6004788-8 (Version None)
Quarter: 2008Q4

REPORT INFORMATION
  Report Type: 
  Country: None (occurrence: None)
  Receive Date: 20081216
  Receipt Date: 20081208
  Transmission Date: 20090506
  Serious: Yes (Death)
  Sender: FDA-Public Use
  Company Number: US-GENENTECH-272699

PATIENT
  Sex: Male
  Weight: 65.306 kg

DRUGS (18)
  1. RITUXAN [Suspect]
     Indication: CHRONIC LYMPHOCYTIC LEUKAEMIA
     Dosage: 375 MG/M2, Q28D
     Route: 042
     Dates: start: 20080818
  2. FLUDARABINE PHOSPHATE [Concomitant]
     Indication: CHRONIC LYMPHOCYTIC LEUKAEMIA
  3. CYTOXAN [Concomitant]
     Indication: CHRONIC LYMPHOCYTIC LEUKAEMIA
  4. ADVAIR DISKUS 100/50 [Concomitant]
     Indication: DRUG USE FOR UNKNOWN INDICATION
     Dosage: 1 PUFF, Q12H
  5. ALBUTEROL [Concomitant]
     Indication: DRUG USE FOR UNKNOWN INDICATION
     Dosage: UNK
  6. LASIX [Concomitant]
     Indication: DRUG USE FOR UNKNOWN INDICATION
     Dosage: 40 MG, QD
  7. METOPROLOL [Concomitant]
     Indication: DRUG USE FOR UNKNOWN INDICATION
     Dosage: 12.5 MG, QD
  8. ALTACE [Concomitant]
     Indication: DRUG USE FOR UNKNOWN INDICATION
     Dosage: 5 MG, QD
  9. CARDURA [Concomitant]
     Indication: DRUG USE FOR UNKNOWN INDICATION
     Dosage: 4 MG, QD
  10. TOPROL-XL [Concomitant]
     Indication: DRUG USE FOR UNKNOWN INDICATION
     Dosage: 12.5 MG, QD
  11. POTASSIUM CHLORIDE [Concomitant]
     Indication: DRUG USE FOR UNKNOWN INDICATION
     Dosage: 10 MEQ, QD
  12. DARVOCET [Concomitant]
     Indication: DRUG USE FOR UNKNOWN INDICATION
     Dosage: UNK
     Route: 048
  13. BACTRIM [Concomitant]
     Indication: DRUG USE FOR UNKNOWN INDICATION
  14. PERCOCET [Concomitant]
     Indication: PAIN
     Dosage: UNK
     Route: 048
  15. ALLOPURINOL [Concomitant]
     Indication: DRUG USE FOR UNKNOWN INDICATION
     Dosage: 300 MG, QD
     Route: 048
  16. COMPAZINE [Concomitant]
     Indication: NAUSEA
     Dosage: 10 MG, PRN
     Route: 048
  17. TYLENOL (CAPLET) [Concomitant]
     Indication: PREMEDICATION
  18. BENADRYL [Concomitant]
     Indication: PREMEDICATION

REACTIONS (1)
  - CARDIAC ARREST [None]
